FAERS Safety Report 11656347 (Version 3)
Quarter: 2016Q2

REPORT INFORMATION
  Report Type: Report from Study
  Country: US (occurrence: US)
  Receive Date: 20151023
  Receipt Date: 20160520
  Transmission Date: 20160815
  Serious: Yes (Hospitalization)
  Sender: FDA-Public Use
  Company Number: US-TARO-2015TAR00985

PATIENT
  Age: 60 Year
  Sex: Male

DRUGS (4)
  1. NAPROXEN SODIUM. [Concomitant]
     Active Substance: NAPROXEN SODIUM
     Dosage: 2-3 TIMES DAILY
     Route: 048
     Dates: start: 20151001
  2. HYDROCODONE/ACETAMINOPHEN 5MG/325MG [Concomitant]
     Active Substance: ACETAMINOPHEN\HYDROCODONE
     Indication: ARTHRALGIA
     Dosage: 5MG/325MG, 3X/DAY
     Route: 048
     Dates: start: 10150806
  3. NAPROXEN SODIUM. [Concomitant]
     Active Substance: NAPROXEN SODIUM
     Indication: ARTHRALGIA
     Dosage: 220 MG, 3X/DAY
     Route: 048
     Dates: start: 2013
  4. SOLARAZE [Suspect]
     Active Substance: DICLOFENAC SODIUM
     Indication: ACTINIC KERATOSIS
     Dosage: UNK, 2X/DAY
     Route: 061
     Dates: start: 20150713, end: 20151011

REACTIONS (1)
  - Hip arthroplasty [Recovered/Resolved]

NARRATIVE: CASE EVENT DATE: 20150824
